FAERS Safety Report 8116636-0 (Version None)
Quarter: 2012Q1

REPORT INFORMATION
  Report Type: 
  Country: None (occurrence: None)
  Receive Date: 20120206
  Receipt Date: 20120126
  Transmission Date: 20120608
  Serious: Yes (Hospitalization, Other)
  Sender: FDA-Public Use
  Company Number: PHHY2011JP59489

PATIENT
  Sex: Female

DRUGS (3)
  1. AREDIA [Suspect]
     Indication: METASTASES TO BONE
     Dosage: UNK UKN, UNK
     Route: 041
     Dates: start: 20030501, end: 20110510
  2. ZOMETA [Suspect]
     Indication: METASTASES TO BONE
     Dosage: 4 MG, QMO
     Route: 041
  3. FARESTON [Concomitant]
     Dosage: 40 MG, UNK
     Route: 048
     Dates: start: 20050601

REACTIONS (5)
  - NEOPLASM MALIGNANT [None]
  - FALL [None]
  - NEOPLASM PROGRESSION [None]
  - FEMUR FRACTURE [None]
  - BONE PAIN [None]
